FAERS Safety Report 15267959 (Version 1)
Quarter: 2018Q3

REPORT INFORMATION
  Report Type: Spontaneous
  Country: US (occurrence: US)
  Receive Date: 20180725
  Receipt Date: 20180725
  Transmission Date: 20181010
  Serious: Yes (Hospitalization)
  Sender: FDA-Public Use
  Company Number: None

PATIENT
  Age: 63 Year
  Sex: Female
  Weight: 81 kg

DRUGS (7)
  1. MULTIVITAMIN FOR WOMEN OVER 50 [Concomitant]
  2. CLARITIN [Concomitant]
     Active Substance: LORATADINE
  3. ASACOL [Concomitant]
     Active Substance: MESALAMINE
  4. (ZPAC) AZITHROMYCIN [Concomitant]
  5. AMLODIPINE BESYLAT [Concomitant]
     Active Substance: AMLODIPINE BESYLATE
  6. PEPTO BISMAL [Concomitant]
  7. LEVOFLOXACIN 750 MG GENERIC FOR LEVAQUIN 750 MG [Suspect]
     Active Substance: LEVOFLOXACIN
     Indication: SINUSITIS
     Dosage: ?          QUANTITY:7 TABLET(S);?
     Route: 048
     Dates: start: 20180607, end: 20180608

REACTIONS (2)
  - Electrocardiogram abnormal [None]
  - Chest pain [None]

NARRATIVE: CASE EVENT DATE: 20180608
